FAERS Safety Report 11265958 (Version 2)
Quarter: 2015Q3

REPORT INFORMATION
  Report Type: Spontaneous
  Country: US (occurrence: US)
  Receive Date: 20150713
  Receipt Date: 20150716
  Transmission Date: 20151125
  Serious: Yes (Hospitalization)
  Sender: FDA-Public Use
  Company Number: US-ACTELION-A-NJ2015-120612

PATIENT
  Age: 33 Year
  Sex: Female

DRUGS (4)
  1. RIOCIGUAT [Concomitant]
     Active Substance: RIOCIGUAT
  2. VELETRI [Suspect]
     Active Substance: EPOPROSTENOL
     Indication: PULMONARY ARTERIAL HYPERTENSION
     Dosage: 105 UNK, UNK
     Route: 042
     Dates: start: 201104
  3. OPSUMIT [Suspect]
     Active Substance: MACITENTAN
     Indication: PULMONARY ARTERIAL HYPERTENSION
     Dosage: 10 MG, QD
     Route: 048
     Dates: start: 20140630
  4. VELETRI [Suspect]
     Active Substance: EPOPROSTENOL
     Dosage: 110 NG/KG, PER MIN
     Route: 042
     Dates: start: 20110421

REACTIONS (4)
  - Deep vein thrombosis [Unknown]
  - Pneumonia [Unknown]
  - Sepsis [Unknown]
  - Pericardial effusion [Unknown]
